FAERS Safety Report 23462006 (Version 1)
Quarter: 2024Q1

REPORT INFORMATION
  Report Type: Spontaneous
  Country: IN (occurrence: IN)
  Receive Date: 20240131
  Receipt Date: 20240131
  Transmission Date: 20240409
  Serious: Yes (Death)
  Sender: FDA-Public Use
  Company Number: IN-BAUSCH-BL-2024-001178

PATIENT
  Age: 48 Year
  Sex: Male

DRUGS (4)
  1. DEXAMETHASONE [Suspect]
     Active Substance: DEXAMETHASONE
     Indication: COVID-19
     Dosage: HIGH DOSE
     Route: 042
  2. REMDESIVIR [Concomitant]
     Active Substance: REMDESIVIR
     Indication: COVID-19
     Dosage: DAY 1
     Route: 065
  3. REMDESIVIR [Concomitant]
     Active Substance: REMDESIVIR
     Dosage: DAY 2 TO DAY 5
     Route: 065
  4. OXYGEN [Concomitant]
     Active Substance: OXYGEN
     Indication: Oxygen therapy
     Route: 065

REACTIONS (2)
  - Rhinocerebral mucormycosis [Fatal]
  - Aspergillus infection [Fatal]
